FAERS Safety Report 18520255 (Version 1)
Quarter: 2020Q4

REPORT INFORMATION
  Report Type: Spontaneous
  Country: US (occurrence: US)
  Receive Date: 20201119
  Receipt Date: 20201119
  Transmission Date: 20210114
  Serious: Yes (Life-Threatening, Hospitalization, Other)
  Sender: FDA-Public Use
  Company Number: US-HIKMA PHARMACEUTICALS USA INC.-US-H14001-20-52612

PATIENT
  Age: 52 Year
  Sex: Female

DRUGS (7)
  1. AMIODARONE [Suspect]
     Active Substance: AMIODARONE
     Indication: ARRHYTHMIA PROPHYLAXIS
     Route: 065
  2. HEPARIN [Suspect]
     Active Substance: HEPARIN SODIUM
     Indication: ANTICOAGULANT THERAPY
     Route: 065
  3. HEPARIN [Suspect]
     Active Substance: HEPARIN SODIUM
     Indication: THROMBOSIS PROPHYLAXIS
     Route: 065
  4. AMIODARONE [Suspect]
     Active Substance: AMIODARONE
     Indication: ATRIAL FIBRILLATION
     Dosage: 2 150-MG BOLUSES
     Route: 040
  5. AMIODARONE [Suspect]
     Active Substance: AMIODARONE
     Indication: ATRIAL FIBRILLATION
  6. HEPARIN [Suspect]
     Active Substance: HEPARIN SODIUM
     Dosage: 10 DAYS BEFORE SURGERY
     Route: 065
  7. AMIODARONE [Suspect]
     Active Substance: AMIODARONE
     Indication: ARRHYTHMIA PROPHYLAXIS
     Route: 065

REACTIONS (9)
  - Hepatotoxicity [Recovered/Resolved]
  - Mixed liver injury [Recovered/Resolved]
  - Hypoglycaemia [Recovered/Resolved]
  - Encephalopathy [Recovered/Resolved]
  - Nosocomial infection [Recovered/Resolved]
  - Drug-induced liver injury [Recovered/Resolved]
  - Respiratory alkalosis [Recovered/Resolved]
  - Hypogammaglobulinaemia [Recovered/Resolved]
  - Drug hypersensitivity [Recovered/Resolved]
